FAERS Safety Report 18387927 (Version 2)
Quarter: 2020Q4

REPORT INFORMATION
  Report Type: Report from Study
  Country: US (occurrence: US)
  Receive Date: 20201015
  Receipt Date: 20201205
  Transmission Date: 20210114
  Serious: No
  Sender: FDA-Public Use
  Company Number: NVSC2020US275748

PATIENT
  Sex: Male

DRUGS (1)
  1. COSENTYX [Suspect]
     Active Substance: SECUKINUMAB
     Indication: ANKYLOSING SPONDYLITIS
     Dosage: 300 MG, QMO
     Route: 058

REACTIONS (4)
  - Decreased appetite [Recovered/Resolved]
  - Gastrointestinal disorder [Recovered/Resolved]
  - Weight decreased [Recovered/Resolved]
  - Pain [Recovered/Resolved]
